FAERS Safety Report 10233988 (Version 1)
Quarter: 2014Q1

REPORT INFORMATION
  Report Type: Spontaneous
  Country: US (occurrence: None)
  Receive Date: 20140306
  Receipt Date: 20140306
  Transmission Date: 20141002
  Serious: Yes (Other)
  Sender: FDA-Public Use
  Company Number: 163-21880-13014063

PATIENT
  Age: 83 Year
  Sex: Male

DRUGS (9)
  1. REVLIMID (LENALIDOMIDE) (10 MILLIGRAM, CAPSULES) [Suspect]
     Indication: PLASMA CELL MYELOMA
     Dosage: 10 MG, 21 IN 21 D, PO
     Route: 048
     Dates: start: 20121205
  2. ASPIRIN (ACETYLSALICYLIC ACID) [Concomitant]
  3. CENTRUM SILVER ULTRA MENS (CENTRUM SILVER) [Concomitant]
  4. DEXAMETHASONE (DEXAMETHASONE) [Concomitant]
  5. FUROSEMIDE (FUROSEMIDE) [Concomitant]
  6. GLUCOSAMINE-CHONDROITIN ADV (GLUCOSAMINE W/ CHONDROITIN SULFATE) [Concomitant]
  7. LISINOPRIL (LISINOPRIL) [Concomitant]
  8. LOVASTATIN (LOVASTATIN) [Concomitant]
  9. METOPROLOL TARTRATE (METOPROLOL TARTRATE) [Concomitant]

REACTIONS (1)
  - Blood creatinine increased [None]
